FAERS Safety Report 9693858 (Version 1)
Quarter: 2013Q4

REPORT INFORMATION
  Report Type: Spontaneous
  Country: JP (occurrence: JP)
  Receive Date: 20131118
  Receipt Date: 20131118
  Transmission Date: 20140711
  Serious: Yes (Death)
  Sender: FDA-Public Use
  Company Number: JP-ASTRAZENECA-2013SE84494

PATIENT
  Age: 85 Year
  Sex: 0

DRUGS (2)
  1. SEROQUEL [Suspect]
     Route: 048
  2. AMLODIPINE [Concomitant]
     Route: 048

REACTIONS (3)
  - Neuroleptic malignant syndrome [Fatal]
  - Body temperature increased [Unknown]
  - Muscle rigidity [Unknown]
